FAERS Safety Report 16286957 (Version 1)
Quarter: 2019Q2

REPORT INFORMATION
  Report Type: Spontaneous
  Country: ES (occurrence: ES)
  Receive Date: 20190508
  Receipt Date: 20190508
  Transmission Date: 20190711
  Serious: Yes (Other)
  Sender: FDA-Public Use
  Company Number: ES-ROCHE-2313584

PATIENT
  Age: 56 Year
  Sex: Female
  Weight: 75 kg

DRUGS (11)
  1. GEMCITABINE [Concomitant]
     Active Substance: GEMCITABINE\GEMCITABINE HYDROCHLORIDE
  2. DEXAMETHASONE. [Concomitant]
     Active Substance: DEXAMETHASONE
  3. RITUXIMAB. [Suspect]
     Active Substance: RITUXIMAB
     Route: 065
     Dates: start: 20181203, end: 20181203
  4. PREDNISOLONE. [Concomitant]
     Active Substance: PREDNISOLONE
  5. CISPLATIN. [Concomitant]
     Active Substance: CISPLATIN
  6. RITUXIMAB. [Suspect]
     Active Substance: RITUXIMAB
     Indication: DIFFUSE LARGE B-CELL LYMPHOMA
     Route: 065
     Dates: start: 20131104, end: 20140307
  7. RITUXIMAB. [Suspect]
     Active Substance: RITUXIMAB
     Route: 065
     Dates: start: 20180416, end: 20180918
  8. DOXORUBICIN [Concomitant]
     Active Substance: DOXORUBICIN
  9. RITUXIMAB. [Suspect]
     Active Substance: RITUXIMAB
     Route: 065
     Dates: start: 20190311, end: 20190415
  10. CYCLOPHOSPHAMIDE. [Concomitant]
     Active Substance: CYCLOPHOSPHAMIDE
  11. VINCRISTINE [Concomitant]
     Active Substance: VINCRISTINE

REACTIONS (2)
  - Breast cancer [Unknown]
  - Haemoglobin [Unknown]

NARRATIVE: CASE EVENT DATE: 201809
